FAERS Safety Report 23402718 (Version 2)
Quarter: 2024Q3

REPORT INFORMATION
  Report Type: Spontaneous
  Country: CN (occurrence: CN)
  Receive Date: 20240115
  Receipt Date: 20240819
  Transmission Date: 20241017
  Serious: Yes (Other)
  Sender: PFIZER
  Company Number: CN-PFIZER INC-202400009572

PATIENT
  Age: 59 Year
  Sex: Male

DRUGS (1)
  1. LORBRENA [Suspect]
     Active Substance: LORLATINIB
     Dosage: 100 MG, 1X/DAY (ONE TABLET EACH TIME)
     Dates: start: 202312

REACTIONS (3)
  - Pancreatitis necrotising [Unknown]
  - Lipids increased [Unknown]
  - Pelvic fluid collection [Unknown]
